FAERS Safety Report 9478904 (Version 1)
Quarter: 2013Q3

REPORT INFORMATION
  Report Type: Spontaneous
  Country: CH (occurrence: CH)
  Receive Date: 20130827
  Receipt Date: 20130827
  Transmission Date: 20140515
  Serious: Yes (Other)
  Sender: FDA-Public Use
  Company Number: CH-BAXTER-2013BAX033227

PATIENT
  Age: 61 Year
  Sex: Male

DRUGS (3)
  1. KIOVIG 2.5G/25ML [Suspect]
     Indication: PRIMARY IMMUNODEFICIENCY SYNDROME
     Dosage: 0.2-0.5 G/KG
     Route: 042
  2. KIOVIG 2.5G/25ML [Suspect]
     Indication: URTICARIA CHRONIC
  3. KIOVIG 2.5G/25ML [Suspect]
     Indication: OFF LABEL USE

REACTIONS (2)
  - Urticaria chronic [Not Recovered/Not Resolved]
  - Angioedema [Not Recovered/Not Resolved]
